FAERS Safety Report 15789581 (Version 1)
Quarter: 2019Q1

REPORT INFORMATION
  Report Type: Spontaneous
  Country: US (occurrence: US)
  Receive Date: 20190104
  Receipt Date: 20190104
  Transmission Date: 20190417
  Serious: Yes (Hospitalization)
  Sender: FDA-Public Use
  Company Number: US-JNJFOC-20190102009

PATIENT
  Sex: Male

DRUGS (17)
  1. PREDNISOLONE. [Concomitant]
     Active Substance: PREDNISOLONE
     Route: 048
  2. METHOTREXATE. [Concomitant]
     Active Substance: METHOTREXATE
     Route: 048
  3. STELARA [Suspect]
     Active Substance: USTEKINUMAB
     Indication: OSTEOARTHRITIS
     Route: 058
  4. ONDANSETRON [Concomitant]
     Active Substance: ONDANSETRON
     Route: 048
  5. CARVEDILOL. [Concomitant]
     Active Substance: CARVEDILOL
     Route: 048
  6. CITALOPRAM [Concomitant]
     Active Substance: CITALOPRAM HYDROBROMIDE
     Route: 048
  7. FUROSEMIDE. [Concomitant]
     Active Substance: FUROSEMIDE
     Route: 048
  8. LOSARTAN. [Concomitant]
     Active Substance: LOSARTAN
     Route: 048
  9. PANTOPRAZOLE [Concomitant]
     Active Substance: PANTOPRAZOLE
     Route: 048
  10. CLOPIDOGREL [Concomitant]
     Active Substance: CLOPIDOGREL BISULFATE
     Route: 048
  11. AZITHROMYCIN ANHYDROUS. [Concomitant]
     Active Substance: AZITHROMYCIN ANHYDROUS
     Route: 048
  12. KLOR-CON [Concomitant]
     Active Substance: POTASSIUM CHLORIDE
     Route: 048
  13. NITROSTAT [Concomitant]
     Active Substance: NITROGLYCERIN
     Route: 065
  14. NORCO [Concomitant]
     Active Substance: ACETAMINOPHEN\HYDROCODONE BITARTRATE
     Dosage: 7.5 TO 325
     Route: 048
  15. ZITHROMAX [Concomitant]
     Active Substance: AZITHROMYCIN DIHYDRATE
     Route: 065
  16. FOLIC ACID. [Concomitant]
     Active Substance: FOLIC ACID
     Route: 048
  17. KETOCONAZOLE. [Concomitant]
     Active Substance: KETOCONAZOLE
     Route: 065

REACTIONS (4)
  - Infection [Not Recovered/Not Resolved]
  - Product use in unapproved indication [Unknown]
  - Off label use [Unknown]
  - Cardiac pacemaker replacement [Not Recovered/Not Resolved]
